FAERS Safety Report 4422429-8 (Version None)
Quarter: 2004Q3

REPORT INFORMATION
  Report Type: 
  Country: None (occurrence: None)
  Receive Date: 20040805
  Receipt Date: 20040721
  Transmission Date: 20050211
  Serious: Yes (Other)
  Sender: FDA-Public Use
  Company Number: 2004-BP-05968BP

PATIENT
  Age: 30 Year
  Sex: Female

DRUGS (3)
  1. VIRAMUNE [Suspect]
     Indication: HIV INFECTION
     Route: 048
     Dates: start: 20030129
  2. STAVUDINE (STAVUDINE) [Suspect]
     Indication: HIV INFECTION
  3. LAMIVUDINE (LAMIVUDINE) [Suspect]
     Indication: HIV INFECTION

REACTIONS (3)
  - LIPOATROPHY [None]
  - LIPODYSTROPHY ACQUIRED [None]
  - MUSCLE ATROPHY [None]
